FAERS Safety Report 9474533 (Version 1)
Quarter: 2013Q3

REPORT INFORMATION
  Report Type: Spontaneous
  Country: ES (occurrence: ES)
  Receive Date: 20130823
  Receipt Date: 20130823
  Transmission Date: 20140515
  Serious: Yes (Death, Other)
  Sender: FDA-Public Use
  Company Number: ES-BAXTER-2013BAX033261

PATIENT
  Age: 26 Year
  Sex: Female

DRUGS (8)
  1. KIOVIG 100 MG/ML SOLUCI?N PARA PERFUSI?N 1G/10ML [Suspect]
     Indication: APLASIA PURE RED CELL
     Dosage: 0.5 G/KG
     Route: 042
  2. KIOVIG 100 MG/ML SOLUCI?N PARA PERFUSI?N 1G/10ML [Suspect]
     Indication: AUTOIMMUNE HAEMOLYTIC ANAEMIA
  3. GENOXAL 1 G INYECTABLE [Suspect]
     Indication: APLASIA PURE RED CELL
     Route: 042
  4. GENOXAL 1 G INYECTABLE [Suspect]
     Indication: AUTOIMMUNE HAEMOLYTIC ANAEMIA
  5. RITUXIMAB [Suspect]
     Indication: APLASIA PURE RED CELL
     Route: 042
  6. RITUXIMAB [Suspect]
     Indication: AUTOIMMUNE HAEMOLYTIC ANAEMIA
  7. PREDNISONE [Suspect]
     Indication: APLASIA PURE RED CELL
     Route: 048
  8. PREDNISONE [Suspect]
     Indication: GRAFT VERSUS HOST DISEASE

REACTIONS (2)
  - Haemolysis [Fatal]
  - Drug ineffective [Not Recovered/Not Resolved]
